FAERS Safety Report 9740254 (Version 2)
Quarter: 2014Q1

REPORT INFORMATION
  Report Type: Spontaneous
  Country: US (occurrence: US)
  Receive Date: 20131209
  Receipt Date: 20140313
  Transmission Date: 20141002
  Serious: No
  Sender: FDA-Public Use
  Company Number: US-BIOGENIDEC-2013BI093343

PATIENT
  Age: 44 Year
  Sex: Female

DRUGS (5)
  1. TECFIDERA [Suspect]
     Indication: MULTIPLE SCLEROSIS
     Route: 048
     Dates: start: 20130825, end: 20130831
  2. TECFIDERA [Suspect]
     Indication: MULTIPLE SCLEROSIS
     Route: 048
     Dates: start: 20130901
  3. FISH OIL [Concomitant]
  4. PANTOPRAZOLE SODIUM [Concomitant]
  5. VITAMIN D2 [Concomitant]

REACTIONS (4)
  - Headache [Not Recovered/Not Resolved]
  - Dry mouth [Unknown]
  - Flushing [Not Recovered/Not Resolved]
  - Pruritus [Not Recovered/Not Resolved]
